FAERS Safety Report 6028902-3 (Version None)
Quarter: 2009Q1

REPORT INFORMATION
  Report Type: 
  Country: None (occurrence: None)
  Receive Date: 20090105
  Receipt Date: 20090105
  Transmission Date: 20090719
  Serious: Yes (Hospitalization)
  Sender: FDA-Public Use
  Company Number: None

PATIENT
  Sex: Male
  Weight: 72.5 kg

DRUGS (2)
  1. FLUOROURACIL [Suspect]
     Dosage: 425 MG
     Dates: end: 20081220
  2. ELOXATIN [Suspect]
     Dosage: 94 MG
     Dates: end: 20081215

REACTIONS (4)
  - DIARRHOEA [None]
  - HYPERTENSION [None]
  - PALPITATIONS [None]
  - PYREXIA [None]
